FAERS Safety Report 8927720 (Version 2)
Quarter: 2013Q1

REPORT INFORMATION
  Report Type: Spontaneous
  Country: FR (occurrence: FR)
  Receive Date: 20121127
  Receipt Date: 20130114
  Transmission Date: 20140127
  Serious: Yes (Other)
  Sender: FDA-Public Use
  Company Number: PHHY2012FR107626

PATIENT
  Age: 73 Year
  Sex: Female

DRUGS (3)
  1. TEGRETOL LP [Suspect]
     Dosage: 9 DF, ONCE/SINGLE
     Dates: start: 20110727, end: 20110727
  2. SERESTA [Concomitant]
  3. IMODIUM [Concomitant]

REACTIONS (5)
  - Gait disturbance [Recovered/Resolved]
  - Asthenia [Recovered/Resolved]
  - Dizziness [Recovered/Resolved]
  - Incorrect dose administered [Unknown]
  - Wrong drug administered [Recovered/Resolved]
